FAERS Safety Report 11088203 (Version 2)
Quarter: 2015Q2

REPORT INFORMATION
  Report Type: Spontaneous
  Country: US (occurrence: US)
  Receive Date: 20150504
  Receipt Date: 20150609
  Transmission Date: 20150821
  Serious: Yes (Hospitalization)
  Sender: FDA-Public Use
  Company Number: US-AMGEN-USASP2015041377

PATIENT
  Age: 79 Year
  Sex: Female

DRUGS (6)
  1. LITHIUM. [Concomitant]
     Active Substance: LITHIUM
     Dosage: UNK
  2. PROLIA [Suspect]
     Active Substance: DENOSUMAB
     Indication: BONE DENSITY DECREASED
     Dosage: 60 MG, UNK
     Route: 065
     Dates: start: 20141119
  3. MEDEX FORTE [Concomitant]
     Indication: SINUSITIS
     Dosage: UNK
  4. SENSIPAR [Suspect]
     Active Substance: CINACALCET HYDROCHLORIDE
     Indication: HYPERPARATHYROIDISM
     Dosage: 30 MG, QD
     Route: 065
  5. VITAMIN D                          /00107901/ [Concomitant]
     Active Substance: ERGOCALCIFEROL
     Indication: THYROID DISORDER
     Dosage: 50000 IU, UNK
  6. ADVIL (MEFENAMIC ACID) [Concomitant]
     Active Substance: MEFENAMIC ACID
     Dosage: UNK

REACTIONS (5)
  - Rash pruritic [Unknown]
  - Nephrectomy [Unknown]
  - Herpes zoster [Recovered/Resolved]
  - Skin sensitisation [Unknown]
  - Erythema [Unknown]

NARRATIVE: CASE EVENT DATE: 20141119
